FAERS Safety Report 4392999-7 (Version None)
Quarter: 2004Q3

REPORT INFORMATION
  Report Type: 
  Country: None (occurrence: None)
  Receive Date: 20040708
  Receipt Date: 20040628
  Transmission Date: 20050211
  Serious: Yes (Other)
  Sender: FDA-Public Use
  Company Number: US-BRISTOL-MYERS SQUIBB COMPANY-12626354

PATIENT
  Age: 88 Year
  Sex: Male

DRUGS (2)
  1. TRIAMCINOLONE ACE INJ [Suspect]
     Route: 014
  2. LIDOCAINE [Suspect]

REACTIONS (6)
  - ARTHRALGIA [None]
  - ARTHRITIS FUNGAL [None]
  - ARTHRITIS INFECTIVE [None]
  - ASPERGILLOSIS [None]
  - BONE MARROW OEDEMA [None]
  - JOINT SWELLING [None]
